FAERS Safety Report 6121760-8 (Version None)
Quarter: 2009Q1

REPORT INFORMATION
  Report Type: 
  Country: None (occurrence: None)
  Receive Date: 20090317
  Receipt Date: 20090310
  Transmission Date: 20090719
  Serious: No
  Sender: FDA-Public Use
  Company Number: US-B.I. PHARMACEUTICALS,INC./RIDGEFIELD-2009-BP-03056BP

PATIENT
  Sex: Female

DRUGS (1)
  1. MICARDIS HCT [Suspect]
     Route: 048
     Dates: start: 20090101, end: 20090101

REACTIONS (2)
  - HYPERSENSITIVITY [None]
  - PRURITUS [None]
